FAERS Safety Report 5602892-7 (Version None)
Quarter: 2008Q1

REPORT INFORMATION
  Report Type: 
  Country: None (occurrence: None)
  Receive Date: 20080125
  Receipt Date: 20080103
  Transmission Date: 20080703
  Serious: No
  Sender: FDA-Public Use
  Company Number: US-BOEHRINGER INGELHEIM PHARMACEUTICALS, INC.-2007-BP-25309BP

PATIENT
  Age: 61 Year
  Sex: Female
  Weight: 54 kg

DRUGS (4)
  1. SPIRIVA [Suspect]
     Indication: CHRONIC OBSTRUCTIVE PULMONARY DISEASE
     Route: 055
     Dates: end: 20071111
  2. ALBUTEROL (PROAIR HFA) [Concomitant]
     Dates: start: 20070801, end: 20071111
  3. ADVAIR DISKUS 100/50 [Concomitant]
  4. PREMPRO [Concomitant]

REACTIONS (3)
  - JOINT RANGE OF MOTION DECREASED [None]
  - OEDEMA PERIPHERAL [None]
  - SKIN TIGHTNESS [None]
